FAERS Safety Report 14214727 (Version 1)
Quarter: 2017Q4

REPORT INFORMATION
  Report Type: Spontaneous
  Country: US (occurrence: US)
  Receive Date: 20171122
  Receipt Date: 20171122
  Transmission Date: 20180321
  Serious: No
  Sender: FDA-Public Use
  Company Number: US-ROCHE-1912491

PATIENT
  Sex: Female
  Weight: 105.33 kg

DRUGS (7)
  1. TAXOL [Concomitant]
     Active Substance: PACLITAXEL
     Indication: BREAST CANCER
     Route: 065
     Dates: end: 201701
  2. PERJETA [Suspect]
     Active Substance: PERTUZUMAB
     Indication: BREAST CANCER
     Route: 065
     Dates: end: 201701
  3. MELATONIN [Concomitant]
     Active Substance: MELATONIN
     Route: 065
  4. PROBIOTIC (ENZYMES, INC) [Concomitant]
     Route: 065
  5. HERCEPTIN [Suspect]
     Active Substance: TRASTUZUMAB
     Indication: BREAST CANCER
     Dosage: PART OF BREAST CANCER PROTOCOL
     Route: 042
     Dates: end: 201701
  6. LIVER CARE HERBAL SUPPLEMENT [Concomitant]
     Route: 065
  7. HERCEPTIN [Suspect]
     Active Substance: TRASTUZUMAB
     Dosage: HAD 2 SOLO INFUSIONS
     Route: 042
     Dates: start: 201701

REACTIONS (2)
  - Arthralgia [Not Recovered/Not Resolved]
  - Pain in extremity [Not Recovered/Not Resolved]
